FAERS Safety Report 20414770 (Version 1)
Quarter: 2022Q1

REPORT INFORMATION
  Report Type: Spontaneous
  Country: US (occurrence: US)
  Receive Date: 20220202
  Receipt Date: 20220202
  Transmission Date: 20220423
  Serious: No
  Sender: FDA-Public Use
  Company Number: US-BIOGEN-2022BI01091422

PATIENT
  Age: 28 Year
  Sex: Male

DRUGS (1)
  1. TECFIDERA [Suspect]
     Active Substance: DIMETHYL FUMARATE
     Indication: Product used for unknown indication
     Route: 048
     Dates: start: 201907

REACTIONS (4)
  - Product dose omission issue [Unknown]
  - Abdominal discomfort [Unknown]
  - Anxiety [Unknown]
  - Flushing [Unknown]

NARRATIVE: CASE EVENT DATE: 20220126
